FAERS Safety Report 6604178-0 (Version None)
Quarter: 2010Q1

REPORT INFORMATION
  Report Type: 
  Country: None (occurrence: None)
  Receive Date: 20100226
  Receipt Date: 20090722
  Transmission Date: 20100710
  Serious: No
  Sender: FDA-Public Use
  Company Number: A0793098A

PATIENT
  Sex: Male

DRUGS (2)
  1. LAMOTRIGINE [Suspect]
     Dosage: 200MG PER DAY
     Route: 048
  2. BUPROPION HCL [Suspect]
     Route: 065

REACTIONS (3)
  - FLUSHING [None]
  - RASH [None]
  - URTICARIA [None]
